FAERS Safety Report 4583021-8 (Version None)
Quarter: 2005Q1

REPORT INFORMATION
  Report Type: 
  Country: None (occurrence: None)
  Receive Date: 20050125
  Receipt Date: 20041110
  Transmission Date: 20050727
  Serious: No
  Sender: FDA-Public Use
  Company Number: USA040979429

PATIENT
  Age: 57 Year
  Sex: Female

DRUGS (8)
  1. FORTEO [Suspect]
     Indication: OSTEOPOROSIS
     Dates: start: 20040527
  2. EVISTA [Suspect]
     Dates: start: 19980101, end: 20040526
  3. FOSAMAX [Concomitant]
  4. VITAMINS [Concomitant]
  5. DAILY MULTIVIT [Concomitant]
  6. CALCIUM GLUCONATE [Concomitant]
  7. BELLAMINE S [Concomitant]
  8. ZOLOFT [Concomitant]

REACTIONS (8)
  - ALOPECIA [None]
  - BIOPSY VAGINA [None]
  - HAIR DISORDER [None]
  - HAIR TEXTURE ABNORMAL [None]
  - METRORRHAGIA [None]
  - PELVIC PAIN [None]
  - ULTRASOUND PELVIS [None]
  - VULVOVAGINAL DRYNESS [None]
